FAERS Safety Report 24566224 (Version 1)
Quarter: 2024Q4

REPORT INFORMATION
  Report Type: Spontaneous
  Country: FR (occurrence: FR)
  Receive Date: 20241030
  Receipt Date: 20241030
  Transmission Date: 20250114
  Serious: Yes (Death, Other)
  Sender: AMGEN
  Company Number: FR-AMGEN-FRASP2024212439

PATIENT

DRUGS (1)
  1. ADALIMUMAB [Suspect]
     Active Substance: ADALIMUMAB
     Indication: Psoriatic arthropathy
     Dosage: UNK
     Route: 065

REACTIONS (10)
  - Death [Fatal]
  - Pneumonia [Unknown]
  - Gastrointestinal infection [Unknown]
  - Urinary tract infection [Unknown]
  - Ear, nose and throat infection [Unknown]
  - Skin infection [Unknown]
  - Infection [Unknown]
  - Myositis [Unknown]
  - Osteomyelitis [Unknown]
  - Arthritis infective [Unknown]
